FAERS Safety Report 5700086-8 (Version None)
Quarter: 2008Q2

REPORT INFORMATION
  Report Type: 
  Country: None (occurrence: None)
  Receive Date: 20080410
  Receipt Date: 20080402
  Transmission Date: 20081010
  Serious: Yes (Other)
  Sender: FDA-Public Use
  Company Number: US-JNJFOC-20080401262

PATIENT
  Sex: Male
  Weight: 102.06 kg

DRUGS (4)
  1. EXTRA STRENGTH TYLENOL [Suspect]
     Indication: MUSCLE TIGHTNESS
  2. EXTRA STRENGTH TYLENOL [Suspect]
     Indication: TENSION HEADACHE
     Dosage: FOR MANY YEARS
  3. LIPITOR [Concomitant]
     Indication: HYPERCHOLESTEROLAEMIA
  4. METOPROLOL TARTRATE [Concomitant]
     Indication: HYPERTENSION

REACTIONS (1)
  - MEDICATION TAMPERING [None]
